FAERS Safety Report 6127028-8 (Version None)
Quarter: 2009Q1

REPORT INFORMATION
  Report Type: 
  Country: None (occurrence: None)
  Receive Date: 20090320
  Receipt Date: 20090310
  Transmission Date: 20090719
  Serious: Yes (Life-Threatening, Hospitalization)
  Sender: FDA-Public Use
  Company Number: FR-WYE-H08616809

PATIENT
  Sex: Female

DRUGS (8)
  1. PANTOPRAZOLE SODIUM [Suspect]
     Route: 048
     Dates: start: 20080123, end: 20090123
  2. BLOPRESS [Concomitant]
     Indication: HYPERTENSION
     Dosage: UNKNOWN
     Route: 048
  3. ROCALTROL [Concomitant]
     Indication: MORPHOEA
     Dosage: UNKNOWN
     Route: 048
  4. CEFOTAXIME [Concomitant]
     Indication: WOUND INFECTION
     Dosage: UNKNOWN
  5. GENTAMICIN [Concomitant]
     Indication: WOUND INFECTION
     Dosage: UNKNOWN
     Dates: start: 20081210, end: 20081221
  6. CLAMOXYL [Concomitant]
     Indication: WOUND INFECTION
     Dosage: UNKNOWN
     Dates: start: 20080101, end: 20080101
  7. ZYVOX [Suspect]
     Indication: WOUND INFECTION
     Route: 048
     Dates: start: 20081221, end: 20090123
  8. VANCOMYCIN [Concomitant]
     Indication: WOUND INFECTION
     Dosage: UNKNOWN

REACTIONS (6)
  - BLOOD ALKALINE PHOSPHATASE ABNORMAL [None]
  - BLOOD BILIRUBIN ABNORMAL [None]
  - CHOLESTASIS [None]
  - GAMMA-GLUTAMYLTRANSFERASE ABNORMAL [None]
  - PANCYTOPENIA [None]
  - TRANSAMINASES ABNORMAL [None]
